FAERS Safety Report 8094520-9 (Version None)
Quarter: 2012Q1

REPORT INFORMATION
  Report Type: 
  Country: None (occurrence: None)
  Receive Date: 20120131
  Receipt Date: 20120117
  Transmission Date: 20120608
  Serious: Yes (Other)
  Sender: FDA-Public Use
  Company Number: JP-NOVOPROD-341932

PATIENT
  Age: 71 Year
  Sex: Male
  Weight: 85 kg

DRUGS (8)
  1. JANUVIA [Concomitant]
     Dosage: 50 MG, QD
  2. METFORMIN HCL [Concomitant]
     Indication: TYPE 2 DIABETES MELLITUS
     Dosage: 750 MG, QD
     Route: 048
     Dates: start: 20100814, end: 20100910
  3. VICTOZA [Suspect]
     Dosage: 0.6 MG, QD
     Route: 058
     Dates: start: 20100819
  4. ACTOS [Concomitant]
     Indication: TYPE 2 DIABETES MELLITUS
     Dosage: 15 MG, QD
     Route: 048
     Dates: start: 20100814
  5. VICTOZA [Suspect]
     Dosage: 0.3 MG, QD
     Route: 058
     Dates: start: 20100918
  6. METFORMIN HCL [Concomitant]
     Indication: TYPE 2 DIABETES MELLITUS
     Dosage: 1500 MG, QD
     Route: 048
     Dates: start: 20100911
  7. AMARYL [Concomitant]
     Dosage: 1 MG, QD
  8. VICTOZA [Suspect]
     Indication: TYPE 2 DIABETES MELLITUS
     Dosage: 0.3 MG, QD
     Route: 058
     Dates: start: 20100812, end: 20100921

REACTIONS (4)
  - MALAISE [None]
  - FEELING ABNORMAL [None]
  - NAUSEA [None]
  - DECREASED APPETITE [None]
